FAERS Safety Report 6420941-3 (Version None)
Quarter: 2009Q4

REPORT INFORMATION
  Report Type: 
  Country: None (occurrence: None)
  Receive Date: 20091030
  Receipt Date: 20091023
  Transmission Date: 20100525
  Serious: Yes (Hospitalization)
  Sender: FDA-Public Use
  Company Number: CH-CUBIST-2009S1000472

PATIENT
  Age: 65 Year
  Sex: Female

DRUGS (4)
  1. CUBICIN [Suspect]
     Indication: ENDOCARDITIS
     Dates: start: 20090817, end: 20090824
  2. VANCOMYCIN [Suspect]
     Indication: ENDOCARDITIS
     Route: 048
     Dates: end: 20090815
  3. RIFAMPICIN SODIUM [Suspect]
     Indication: ENDOCARDITIS
     Route: 048
     Dates: end: 20090815
  4. GENTAMICIN [Suspect]
     Indication: ENDOCARDITIS
     Route: 048
     Dates: end: 20090815

REACTIONS (1)
  - DRUG RASH WITH EOSINOPHILIA AND SYSTEMIC SYMPTOMS [None]
